FAERS Safety Report 7885919-1 (Version None)
Quarter: 2011Q4

REPORT INFORMATION
  Report Type: 
  Country: None (occurrence: None)
  Receive Date: 20111102
  Receipt Date: 20110701
  Transmission Date: 20120403
  Serious: No
  Sender: FDA-Public Use
  Company Number: US-AMGEN-USASP2011033735

PATIENT
  Age: 60 Year
  Sex: Female

DRUGS (7)
  1. PREDNISONE [Concomitant]
     Dosage: 1 MG, UNK
  2. FOLIC ACID [Concomitant]
     Dosage: 20 MG, UNK
  3. CALCIUM [Concomitant]
  4. OMEGA 3                            /00931501/ [Concomitant]
     Dosage: 1000 MG, UNK
  5. VITAMIN D [Concomitant]
  6. ENBREL [Suspect]
     Indication: RHEUMATOID ARTHRITIS
     Dosage: 50 MG, QWK
     Route: 058
  7. METHOTREXATE [Concomitant]
     Dosage: 2.5 MG, UNK

REACTIONS (2)
  - INJECTION SITE PAIN [None]
  - BRONCHITIS [None]
